FAERS Safety Report 4786551-9 (Version None)
Quarter: 2005Q3

REPORT INFORMATION
  Report Type: 
  Country: None (occurrence: None)
  Receive Date: 20050927
  Receipt Date: 20050706
  Transmission Date: 20060218
  Serious: No
  Sender: FDA-Public Use
  Company Number: USA0507102123

PATIENT
  Age: 41 Year
  Sex: Female

DRUGS (3)
  1. PROZAC [Suspect]
     Indication: ANXIETY
     Dosage: 30 MG DAY
     Dates: start: 19900101
  2. STRATTERA [Suspect]
     Indication: ATTENTION DEFICIT/HYPERACTIVITY DISORDER
     Dosage: 80 MG DAY
     Dates: start: 20050501
  3. SYNTHROID [Concomitant]

REACTIONS (3)
  - ALOPECIA [None]
  - DISTURBANCE IN ATTENTION [None]
  - TREMOR [None]
